FAERS Safety Report 6795155-8 (Version None)
Quarter: 2010Q2

REPORT INFORMATION
  Report Type: 
  Country: None (occurrence: None)
  Receive Date: 20100625
  Receipt Date: 20100625
  Transmission Date: 20101027
  Serious: Yes (Hospitalization)
  Sender: FDA-Public Use
  Company Number: PHHO2008US04825

PATIENT
  Sex: Female
  Weight: 51.8 kg

DRUGS (4)
  1. AFINITOR [Suspect]
     Indication: PANCREATIC NEUROENDOCRINE TUMOUR
     Dosage: 10 MG DAILY
     Route: 048
     Dates: start: 20080110, end: 20080402
  2. AFINITOR [Suspect]
     Dosage: 10 MG DAILY
     Route: 048
     Dates: start: 20080405, end: 20080407
  3. ALDACTONE [Suspect]
  4. LISINOPRIL [Suspect]

REACTIONS (5)
  - ANAEMIA [None]
  - CHOLANGIOGRAM [None]
  - HEPATIC ENZYME INCREASED [None]
  - HYPERKALAEMIA [None]
  - HYPONATRAEMIA [None]
